FAERS Safety Report 13642212 (Version 1)
Quarter: 2017Q2

REPORT INFORMATION
  Report Type: Spontaneous
  Country: FR (occurrence: FR)
  Receive Date: 20170612
  Receipt Date: 20170612
  Transmission Date: 20170830
  Serious: Yes (Hospitalization, Other)
  Sender: FDA-Public Use
  Company Number: FR-PFIZER INC-2017120616

PATIENT
  Age: 87 Year
  Sex: Male

DRUGS (3)
  1. IBUPROFEN. [Suspect]
     Active Substance: IBUPROFEN
     Indication: NECK PAIN
     Dosage: 2 G, UNK
     Dates: start: 19820606
  2. ASPIRIN. [Concomitant]
     Active Substance: ASPIRIN
     Indication: NECK PAIN
     Dosage: 2.5 G, UNK
     Dates: start: 19820606
  3. FENOPROFEN. [Suspect]
     Active Substance: FENOPROFEN
     Indication: NECK PAIN
     Dosage: 600 MG, UNK
     Dates: start: 19821226

REACTIONS (4)
  - Acute kidney injury [Recovering/Resolving]
  - Thrombocytopenia [Recovering/Resolving]
  - Drug intolerance [Unknown]
  - Haemorrhage [Unknown]

NARRATIVE: CASE EVENT DATE: 19820606
